FAERS Safety Report 10046015 (Version 2)
Quarter: 2014Q2

REPORT INFORMATION
  Report Type: Spontaneous
  Country: IE (occurrence: IE)
  Receive Date: 20140330
  Receipt Date: 20140404
  Transmission Date: 20141212
  Serious: Yes (Hospitalization)
  Sender: FDA-Public Use
  Company Number: IE-AMGEN-IRLSP2014021343

PATIENT
  Age: 51 Year
  Sex: Female

DRUGS (8)
  1. NEULASTA [Suspect]
     Indication: BREAST CANCER
     Dosage: 6MG/0.6ML, POST CHEMO EVERY TWO WEEKS
     Route: 058
     Dates: start: 20140226
  2. CYCLOPHOSPHAMIDE [Concomitant]
     Dosage: UNK
  3. DOXORUBICIN [Concomitant]
     Dosage: UNK
  4. VALOID                             /00014902/ [Concomitant]
     Dosage: UNK
  5. EMEND                              /01627301/ [Concomitant]
     Dosage: UNK
  6. MYCOSTATIN [Concomitant]
     Dosage: UNK
  7. MOTILIUM                           /00498201/ [Concomitant]
     Dosage: UNK
  8. DEXAMETHASONE [Concomitant]
     Dosage: UNK

REACTIONS (1)
  - General physical health deterioration [Not Recovered/Not Resolved]
